FAERS Safety Report 4942783-8 (Version None)
Quarter: 2006Q1

REPORT INFORMATION
  Report Type: 
  Country: None (occurrence: None)
  Receive Date: 20060309
  Receipt Date: 20060223
  Transmission Date: 20060701
  Serious: Yes (Life-Threatening, Hospitalization)
  Sender: FDA-Public Use
  Company Number: 2005BI022529

PATIENT
  Age: 31 Year
  Sex: Male

DRUGS (12)
  1. ZEVALIN [Suspect]
     Indication: BONE MARROW CONDITIONING REGIMEN
  2. ZEVALIN [Suspect]
     Indication: BONE MARROW CONDITIONING REGIMEN
     Dosage: 0.4 MCI/KG;1X;IV
     Route: 042
     Dates: start: 20051124, end: 20051124
  3. RITUXIMAB [Concomitant]
  4. BCNU [Concomitant]
  5. ETOPOSIDE [Concomitant]
  6. ARACYTINE [Concomitant]
  7. MELPHALAN [Concomitant]
  8. NEFOPAM [Concomitant]
  9. PANTOPRAZOLE [Concomitant]
  10. ACYCLOVIR [Concomitant]
  11. HEPARIN [Concomitant]
  12. MORPHINE [Concomitant]

REACTIONS (10)
  - ACUTE RESPIRATORY FAILURE [None]
  - CAPNOCYTOPHAGIA INFECTION [None]
  - HAEMATOTOXICITY [None]
  - HAEMOGLOBIN DECREASED [None]
  - HYPOXIA [None]
  - LUNG DISORDER [None]
  - PLATELET COUNT DECREASED [None]
  - SEPSIS [None]
  - STEM CELL TRANSPLANT [None]
  - WHITE BLOOD CELL COUNT DECREASED [None]
